FAERS Safety Report 9551048 (Version 3)
Quarter: 2013Q4

REPORT INFORMATION
  Report Type: Spontaneous
  Country: AR (occurrence: AR)
  Receive Date: 20130925
  Receipt Date: 20131004
  Transmission Date: 20140711
  Serious: Yes (Hospitalization, Other)
  Sender: FDA-Public Use
  Company Number: AR-AMGEN-ARGSP2013035823

PATIENT
  Age: 68 Year
  Sex: Female

DRUGS (2)
  1. ENBREL [Suspect]
     Indication: RHEUMATOID ARTHRITIS
     Dosage: 50 MG, WEEKLY
     Route: 058
     Dates: start: 20100520, end: 2012
  2. FILGRASTIM [Concomitant]
     Dosage: 300 UNK, WEEKLY
     Route: 058

REACTIONS (6)
  - Haemorrhage [Not Recovered/Not Resolved]
  - Uterine disorder [Not Recovered/Not Resolved]
  - Decreased immune responsiveness [Not Recovered/Not Resolved]
  - Ankle fracture [Recovering/Resolving]
  - Cataract [Recovered/Resolved]
  - Anaemia [Not Recovered/Not Resolved]
